FAERS Safety Report 22021665 (Version 1)
Quarter: 2023Q1

REPORT INFORMATION
  Report Type: Spontaneous
  Country: US (occurrence: None)
  Receive Date: 20230218
  Receipt Date: 20230218
  Transmission Date: 20230418
  Serious: No
  Sender: FDA-Public Use
  Company Number: None

PATIENT
  Age: 40 Year
  Sex: Female
  Weight: 103.5 kg

DRUGS (9)
  1. METAMUCIL THERAPY FOR REGULARITY [Suspect]
     Active Substance: PSYLLIUM HUSK
     Indication: Bowel movement irregularity
     Route: 048
     Dates: start: 20221201, end: 20221202
  2. MONTELUKAST [Concomitant]
     Active Substance: MONTELUKAST SODIUM
  3. ALBUTEROL [Concomitant]
     Active Substance: ALBUTEROL
  4. PROGESTERONE [Concomitant]
     Active Substance: PROGESTERONE
  5. ESTRADIOL [Concomitant]
     Active Substance: ESTRADIOL
  6. SIMVASTATIN [Concomitant]
     Active Substance: SIMVASTATIN
  7. VITAMIN D [Concomitant]
     Active Substance: VITAMIN D NOS
  8. FLAXSEED [Concomitant]
     Active Substance: FLAX SEED
  9. FISH OIL [Concomitant]
     Active Substance: FISH OIL

REACTIONS (5)
  - Cystitis [None]
  - Urinary tract infection [None]
  - Micturition urgency [None]
  - Bladder discomfort [None]
  - Dysuria [None]

NARRATIVE: CASE EVENT DATE: 20221201
